FAERS Safety Report 24813633 (Version 1)
Quarter: 2025Q1

REPORT INFORMATION
  Report Type: Spontaneous
  Country: GB (occurrence: GB)
  Receive Date: 20250107
  Receipt Date: 20250107
  Transmission Date: 20250409
  Serious: Yes (Other)
  Sender: ABBVIE
  Company Number: None

PATIENT
  Sex: Female

DRUGS (3)
  1. ACULAR [Suspect]
     Active Substance: KETOROLAC TROMETHAMINE
     Indication: Cataract operation
     Route: 047
     Dates: start: 20241210, end: 20250104
  2. CHLORAMPHENICOL [Concomitant]
     Active Substance: CHLORAMPHENICOL
     Indication: Cataract operation
     Dates: start: 20241210, end: 20241224
  3. MAXIDEX [Concomitant]
     Active Substance: DEXAMETHASONE
     Indication: Cataract operation
     Dates: start: 20241210, end: 20250104

REACTIONS (1)
  - Urinary tract infection [Recovering/Resolving]

NARRATIVE: CASE EVENT DATE: 20241230
